FAERS Safety Report 20380297 (Version 3)
Quarter: 2022Q2

REPORT INFORMATION
  Report Type: Other
  Country: KW (occurrence: None)
  Receive Date: 20220126
  Receipt Date: 20220607
  Transmission Date: 20220721
  Serious: No
  Sender: FDA-Public Use
  Company Number: KW-ROCHE-3010308

PATIENT
  Age: 33 Year
  Sex: Male
  Weight: 83 kg

DRUGS (5)
  1. OCRELIZUMAB [Suspect]
     Active Substance: OCRELIZUMAB
     Indication: Primary progressive multiple sclerosis
     Route: 042
     Dates: start: 20191021
  2. TRILEPTAL [Concomitant]
     Active Substance: OXCARBAZEPINE
     Indication: Epilepsy
     Route: 048
     Dates: start: 20130301
  3. KEPPRA [Concomitant]
     Active Substance: LEVETIRACETAM
     Indication: Status epilepticus
     Route: 048
     Dates: start: 20210318
  4. CIPRALEX [Concomitant]
     Active Substance: ESCITALOPRAM OXALATE
     Route: 048
     Dates: start: 20210318
  5. ACETAMINOPHEN [Concomitant]
     Active Substance: ACETAMINOPHEN
     Route: 048
     Dates: start: 20210801, end: 20210807

REACTIONS (1)
  - SARS-CoV-2 test positive [Recovered/Resolved]

NARRATIVE: CASE EVENT DATE: 20210801
